FAERS Safety Report 8858653 (Version 1)
Quarter: 2012Q4

REPORT INFORMATION
  Report Type: 
  Country: US (occurrence: US)
  Receive Date: 20121024
  Receipt Date: 20121024
  Transmission Date: 20130627
  Serious: Yes (Other)
  Sender: FDA-Public Use
  Company Number: US-BAYER-2012-110493

PATIENT
  Age: 58 Year
  Sex: Female
  Weight: 61.22 kg

DRUGS (24)
  1. BETASERON [Suspect]
     Indication: PRODUCT USED FOR UNKNOWN INDICATION
     Dosage: 0.25 mg, QOD
     Route: 058
  2. KEPPRA [Concomitant]
     Route: 048
  3. MULTIVITAMIN [Concomitant]
     Route: 048
  4. ADVAIR [Concomitant]
  5. FENTANYL [Concomitant]
  6. HYOSCYAMINE [Concomitant]
     Route: 048
  7. BENADRYL [Concomitant]
     Route: 048
  8. PRILOSEC [Concomitant]
     Route: 048
  9. SINGULAIR [Concomitant]
     Route: 048
  10. BUPROPION HYDROCHLORIDE [Concomitant]
     Route: 048
  11. RANITIDINE [Concomitant]
  12. HYDROCO/APAP [Concomitant]
     Route: 048
  13. GABAPENTIN [Concomitant]
     Route: 048
  14. ASPIRIN [Concomitant]
     Route: 048
  15. NIFEDIAC CC [Concomitant]
     Route: 048
  16. LASIX [Concomitant]
     Route: 048
  17. TEMAZEPAM [Concomitant]
     Route: 048
  18. AMANTADINE [Concomitant]
     Route: 048
  19. PROMETHAZINE [Concomitant]
     Route: 048
  20. WELLBUTRIN [Concomitant]
     Route: 048
  21. ZOLOFT [Concomitant]
     Route: 048
  22. DICYCLOMINE [Concomitant]
     Route: 048
  23. PRIMIDONE [Concomitant]
     Route: 048
  24. SUCRALFATE [Concomitant]
     Route: 048

REACTIONS (1)
  - Urinary tract infection [Unknown]
